FAERS Safety Report 11511210 (Version 9)
Quarter: 2018Q1

REPORT INFORMATION
  Report Type: Spontaneous
  Country: US (occurrence: US)
  Receive Date: 20150915
  Receipt Date: 20180216
  Transmission Date: 20180508
  Serious: Yes (Hospitalization, Other)
  Sender: FDA-Public Use
  Company Number: US-009507513-1509USA006856

PATIENT
  Sex: Female
  Weight: 73 kg

DRUGS (2)
  1. LOVENOX [Suspect]
     Active Substance: ENOXAPARIN SODIUM
     Indication: ANTICOAGULANT THERAPY
     Dosage: UNK
     Route: 065
     Dates: start: 20131005, end: 20131019
  2. NUVARING [Suspect]
     Active Substance: ETHINYL ESTRADIOL\ETONOGESTREL
     Indication: CONTRACEPTION
     Dosage: 3 WEEKS IN, ONE WEEK OUT
     Route: 067
     Dates: start: 201304, end: 20131005

REACTIONS (30)
  - Emotional distress [Unknown]
  - Pulmonary embolism [Recovering/Resolving]
  - Endometriosis [Unknown]
  - Migraine [Unknown]
  - Maternal exposure before pregnancy [Recovered/Resolved]
  - Menorrhagia [Recovering/Resolving]
  - Transfusion [Unknown]
  - Pain in extremity [Unknown]
  - Pulmonary embolism [Unknown]
  - Menorrhagia [Recovered/Resolved]
  - Iron deficiency anaemia [Unknown]
  - Chest pain [Unknown]
  - Varicella [Unknown]
  - Umbilical hernia [Unknown]
  - Anaemia [Unknown]
  - Anaemia [Unknown]
  - Anticoagulation drug level below therapeutic [Not Recovered/Not Resolved]
  - Adhesion [Unknown]
  - Pain [Unknown]
  - Hypercoagulation [Unknown]
  - Swelling [Unknown]
  - Leukopenia [Unknown]
  - Uterine leiomyoma [Unknown]
  - Headache [Recovered/Resolved]
  - Deep vein thrombosis [Unknown]
  - Muscle spasms [Unknown]
  - Injection site bruising [Unknown]
  - Uterine haemorrhage [Unknown]
  - Anxiety [Unknown]
  - Dysfunctional uterine bleeding [Recovering/Resolving]

NARRATIVE: CASE EVENT DATE: 201310
